FAERS Safety Report 9831161 (Version 1)
Quarter: 2014Q1

REPORT INFORMATION
  Report Type: Spontaneous
  Country: US (occurrence: US)
  Receive Date: 20140121
  Receipt Date: 20140121
  Transmission Date: 20141002
  Serious: Yes (Death, Hospitalization)
  Sender: FDA-Public Use
  Company Number: US-JNJFOC-20140109779

PATIENT
  Age: 18 Year
  Sex: Female

DRUGS (1)
  1. SALICYLATE [Suspect]
     Indication: SUICIDE ATTEMPT
     Route: 048

REACTIONS (7)
  - Intentional overdose [Fatal]
  - Respiratory distress [Unknown]
  - Unresponsive to stimuli [Unknown]
  - Confusional state [Unknown]
  - Vomiting [Unknown]
  - Tinnitus [Unknown]
  - Lethargy [Unknown]
